FAERS Safety Report 11686650 (Version 1)
Quarter: 2015Q4

REPORT INFORMATION
  Report Type: Spontaneous
  Country: US (occurrence: US)
  Receive Date: 20151030
  Receipt Date: 20151030
  Transmission Date: 20160304
  Serious: No
  Sender: FDA-Public Use
  Company Number: US-PFIZER INC-2015354762

PATIENT
  Sex: Female

DRUGS (1)
  1. GABAPENTIN. [Suspect]
     Active Substance: GABAPENTIN
     Dosage: UNK

REACTIONS (6)
  - Dysgeusia [Unknown]
  - Product taste abnormal [Unknown]
  - Malaise [Unknown]
  - Drug prescribing error [Unknown]
  - Dysphagia [Unknown]
  - Drug ineffective [Unknown]
